FAERS Safety Report 5921117-6 (Version None)
Quarter: 2008Q4

REPORT INFORMATION
  Report Type: 
  Country: None (occurrence: None)
  Receive Date: 20081016
  Receipt Date: 20081003
  Transmission Date: 20090506
  Serious: Yes (Other)
  Sender: FDA-Public Use
  Company Number: US-ELI_LILLY_AND_COMPANY-US200809004543

PATIENT
  Sex: Male

DRUGS (1)
  1. CYMBALTA [Suspect]
     Indication: NEURALGIA
     Dosage: 60 MG, UNK

REACTIONS (2)
  - HEPATIC ENZYME INCREASED [None]
  - SURGERY [None]
